FAERS Safety Report 5629125-X (Version None)
Quarter: 2008Q1

REPORT INFORMATION
  Report Type: 
  Country: None (occurrence: None)
  Receive Date: 20080216
  Receipt Date: 20080128
  Transmission Date: 20080703
  Serious: No
  Sender: FDA-Public Use
  Company Number: US-BAXTER-2008BH000835

PATIENT
  Age: 55 Year
  Sex: Male
  Weight: 156 kg

DRUGS (15)
  1. HEPARIN SODIUM [Suspect]
     Indication: THROMBOSIS PROPHYLAXIS
     Route: 010
     Dates: start: 20080122, end: 20080122
  2. HEPARIN SODIUM [Suspect]
     Route: 010
     Dates: start: 20080101
  3. PREDNISONE TAB [Concomitant]
     Indication: DRUG USE FOR UNKNOWN INDICATION
     Dosage: DOSE UNIT:UNKNOWN
     Route: 065
  4. INSULIN [Concomitant]
     Indication: DIABETES MELLITUS
     Dosage: DOSE UNIT:UNKNOWN
     Route: 058
  5. CYMBALTA [Concomitant]
     Indication: DEPRESSION
     Dosage: DOSE UNIT:UNKNOWN
     Route: 065
  6. NIACIN [Concomitant]
     Indication: DRUG USE FOR UNKNOWN INDICATION
     Dosage: DOSE UNIT:UNKNOWN
     Route: 048
  7. ASPIRIN [Concomitant]
     Indication: DRUG USE FOR UNKNOWN INDICATION
     Route: 048
  8. ALLOPURINOL [Concomitant]
     Indication: GOUT
     Dosage: DOSE UNIT:UNKNOWN
     Route: 048
  9. COLCHICINE [Concomitant]
     Indication: GOUT
     Dosage: DOSE UNIT:UNKNOWN
     Route: 048
  10. TYLENOL W/ CODEINE [Concomitant]
     Indication: PAIN
     Dosage: DOSE UNIT:UNKNOWN
     Route: 048
  11. ADRENERGICS, INHALANTS [Concomitant]
     Indication: DRUG USE FOR UNKNOWN INDICATION
     Dosage: DOSE UNIT:UNKNOWN
     Route: 055
  12. AMBIEN [Concomitant]
     Indication: INSOMNIA
     Dosage: DOSE UNIT:UNKNOWN
     Route: 048
  13. CARVEDILOL [Concomitant]
     Indication: DRUG USE FOR UNKNOWN INDICATION
     Dosage: DOSE UNIT:UNKNOWN
     Route: 048
  14. FOLIC ACID [Concomitant]
     Indication: DRUG USE FOR UNKNOWN INDICATION
     Dosage: DOSE UNIT:UNKNOWN
     Route: 048
  15. ALDACTONE [Concomitant]
     Indication: HYPERTENSION
     Dosage: DOSE UNIT:UNKNOWN
     Route: 048

REACTIONS (3)
  - ADVERSE EVENT [None]
  - GASTRIC DISORDER [None]
  - MALAISE [None]
